FAERS Safety Report 9806325 (Version 1)
Quarter: 2014Q1

REPORT INFORMATION
  Report Type: Spontaneous
  Country: DE (occurrence: None)
  Receive Date: 20140107
  Receipt Date: 20140107
  Transmission Date: 20141002
  Serious: Yes (Other)
  Sender: FDA-Public Use
  Company Number: DSM-2014-00001

PATIENT
  Sex: Male

DRUGS (1)
  1. VOCADO HCT (TABLET) [Suspect]
     Indication: HYPERTENSION
     Dosage: 1 IN 1 D
     Route: 048
     Dates: start: 20120821, end: 2013

REACTIONS (5)
  - Joint swelling [None]
  - Gait disturbance [None]
  - Pruritus [None]
  - Weight increased [None]
  - Fatigue [None]
